FAERS Safety Report 7101261-0 (Version None)
Quarter: 2010Q4

REPORT INFORMATION
  Report Type: 
  Country: None (occurrence: None)
  Receive Date: 20101115
  Receipt Date: 20091106
  Transmission Date: 20110411
  Serious: Yes (Hospitalization)
  Sender: FDA-Public Use
  Company Number: US-PFIZER INC-2009295207

PATIENT
  Sex: Female
  Weight: 79.365 kg

DRUGS (5)
  1. CLINDAMYCIN PHOSPHATE [Suspect]
     Indication: TOOTH ABSCESS
     Dosage: 300 MG, 4X/DAY
     Dates: start: 20091017, end: 20091020
  2. SYNTHROID [Concomitant]
     Dosage: UNK
  3. TOPROL-XL [Concomitant]
     Dosage: UNK
  4. VALSARTAN [Concomitant]
     Dosage: UNK
  5. PREVACID [Concomitant]
     Dosage: UNK

REACTIONS (4)
  - CLOSTRIDIAL INFECTION [None]
  - COLITIS [None]
  - DIARRHOEA [None]
  - WHITE BLOOD CELL COUNT INCREASED [None]
